FAERS Safety Report 11814698 (Version 1)
Quarter: 2015Q4

REPORT INFORMATION
  Report Type: Spontaneous
  Country: US (occurrence: None)
  Receive Date: 20151208
  Receipt Date: 20151208
  Transmission Date: 20160305
  Serious: No
  Sender: FDA-Public Use
  Company Number: None

PATIENT
  Age: 64 Year
  Sex: Male
  Weight: 99.79 kg

DRUGS (10)
  1. TAMSULOSIN [Suspect]
     Active Substance: TAMSULOSIN
     Indication: PROSTATOMEGALY
     Dosage: 1 CAP. BY MOUTH
     Dates: start: 20151109, end: 20151109
  2. OMEPRAZOLE. [Concomitant]
     Active Substance: OMEPRAZOLE
  3. SUCCINATE ER [Concomitant]
  4. CENTRUM VITAMIN [Concomitant]
  5. ASPRIN HYDROCHLOROTHIAZIDE [Concomitant]
  6. ZOLPIDEM TARTRATE. [Concomitant]
     Active Substance: ZOLPIDEM TARTRATE
  7. COZAAR [Concomitant]
     Active Substance: LOSARTAN POTASSIUM
  8. AMLODIPINE BESYLATE. [Concomitant]
     Active Substance: AMLODIPINE BESYLATE
  9. METOPROLOL [Concomitant]
     Active Substance: METOPROLOL
  10. FISH OIL [Concomitant]
     Active Substance: FISH OIL

REACTIONS (11)
  - Gait disturbance [None]
  - Pyrexia [None]
  - Headache [None]
  - Dry mouth [None]
  - Back pain [None]
  - Asthenia [None]
  - Product substitution issue [None]
  - Dizziness [None]
  - Abdominal pain upper [None]
  - Dysphonia [None]
  - Chills [None]

NARRATIVE: CASE EVENT DATE: 20151109
